FAERS Safety Report 6368687-4 (Version None)
Quarter: 2009Q3

REPORT INFORMATION
  Report Type: 
  Country: None (occurrence: None)
  Receive Date: 20090922
  Receipt Date: 20090915
  Transmission Date: 20100115
  Serious: Yes (Hospitalization)
  Sender: FDA-Public Use
  Company Number: US-AVENTIS-200917571US

PATIENT
  Sex: Female
  Weight: 64 kg

DRUGS (5)
  1. LANTUS [Suspect]
     Route: 058
     Dates: start: 20060101
  2. DIOVANE [Concomitant]
     Dates: start: 19990101
  3. SYNTHROID [Concomitant]
     Indication: THYROID DISORDER
     Dates: start: 19630101
  4. BUMEX [Concomitant]
     Dates: start: 19960101
  5. ROPINIROLE [Concomitant]
     Dates: start: 20090701

REACTIONS (1)
  - SURGERY [None]
